FAERS Safety Report 14149034 (Version 2)
Quarter: 2017Q4

REPORT INFORMATION
  Report Type: Spontaneous
  Country: DE (occurrence: DE)
  Receive Date: 20171101
  Receipt Date: 20171116
  Transmission Date: 20180321
  Serious: Yes (Other)
  Sender: FDA-Public Use
  Company Number: DE-BAYER-2017-195907

PATIENT
  Age: 32 Year
  Sex: Female
  Weight: 65 kg

DRUGS (1)
  1. ASPIRIN EFFECT [Suspect]
     Active Substance: ASPIRIN
     Dosage: UNK
     Route: 048
     Dates: start: 20171008, end: 20171008

REACTIONS (2)
  - Product quality issue [None]
  - Chemical burn of gastrointestinal tract [Recovered/Resolved]

NARRATIVE: CASE EVENT DATE: 20171008
